FAERS Safety Report 15196516 (Version 1)
Quarter: 2018Q3

REPORT INFORMATION
  Report Type: Spontaneous
  Country: GB (occurrence: GB)
  Receive Date: 20180725
  Receipt Date: 20180725
  Transmission Date: 20181010
  Serious: Yes (Hospitalization)
  Sender: FDA-Public Use
  Company Number: GB-NAPPMUNDI-GBR-2018-0057759

PATIENT
  Age: 89 Year
  Sex: Female

DRUGS (11)
  1. ACIDEX                             /01521901/ [Concomitant]
     Active Substance: CALCIUM CARBONATE\SODIUM ALGINATE\SODIUM BICARBONATE
     Dosage: 1 DF, PRN (ONE OR TWO 5ML SPOONFULS TO BE TAKEN AFTER MEALS AND AT BEDTIME)
  2. MORPHINE SULFATE. [Suspect]
     Active Substance: MORPHINE SULFATE
     Indication: PRODUCT USED FOR UNKNOWN INDICATION
     Dosage: 1 MG, UNK (10MG/5ML)
     Route: 048
  3. FLUTICASONE PROPIONATE W/SALMETEROL XINAFOATE [Concomitant]
     Active Substance: FLUTICASONE PROPIONATE\SALMETEROL XINAFOATE
     Dosage: 2 DF, DAILY [25MICROGRAMS/DOSE /125MICROGRAMS/DOSE)
  4. SALBUTAMOL [Concomitant]
     Active Substance: ALBUTEROL
     Dosage: 2 DF, PRN
  5. LACTULOSE. [Concomitant]
     Active Substance: LACTULOSE
     Dosage: 15 ML, PRN (3.1?3.7G/5ML TWICE DAILY PRN)
  6. DORZOLAMIDE [Concomitant]
     Active Substance: DORZOLAMIDE
     Dosage: 1 DF, DAILY
  7. TIMOLOL. [Concomitant]
     Active Substance: TIMOLOL
     Dosage: 1 DF, DAILY
  8. FERROUS SULFATE. [Concomitant]
     Active Substance: FERROUS SULFATE
     Dosage: 325 MG, DAILY
  9. BUTEC [Suspect]
     Active Substance: BUPRENORPHINE
     Indication: PRODUCT USED FOR UNKNOWN INDICATION
     Dosage: 1 DF, WEEKLY
     Route: 062
     Dates: start: 20171031
  10. RANITIDINE. [Concomitant]
     Active Substance: RANITIDINE
     Dosage: 300 MG, DAILY
  11. SODIUM BICARBONATE. [Concomitant]
     Active Substance: SODIUM BICARBONATE
     Dosage: 1500 MG, DAILY

REACTIONS (2)
  - Confusional state [Recovered/Resolved]
  - Delirium [Recovered/Resolved]
